FAERS Safety Report 8834365 (Version 1)
Quarter: 2012Q4

REPORT INFORMATION
  Report Type: Spontaneous
  Country: US (occurrence: None)
  Receive Date: 20121010
  Receipt Date: 20121010
  Transmission Date: 20130627
  Serious: No
  Sender: FDA-Public Use
  Company Number: None

PATIENT
  Age: 25 Year
  Sex: Female
  Weight: 56.7 kg

DRUGS (1)
  1. MIRENA [Suspect]
     Indication: BIRTH CONTROL

REACTIONS (4)
  - Uterine perforation [None]
  - Pelvic pain [None]
  - Haemorrhage [None]
  - Ovarian cyst [None]
